FAERS Safety Report 19174298 (Version 4)
Quarter: 2021Q3

REPORT INFORMATION
  Report Type: Other
  Country: US (occurrence: US)
  Receive Date: 20210423
  Receipt Date: 20210805
  Transmission Date: 20211014
  Serious: Yes (Hospitalization, Other)
  Sender: FDA-Public Use
  Company Number: US-ROCHE-2811242

PATIENT
  Sex: Female
  Weight: 28.4 kg

DRUGS (2)
  1. EVRYSDI [Suspect]
     Active Substance: RISDIPLAM
     Indication: SPINAL MUSCULAR ATROPHY
     Route: 065
     Dates: start: 202012, end: 202103
  2. SPINRAZA [Concomitant]
     Active Substance: NUSINERSEN

REACTIONS (5)
  - Abdominal distension [Recovered/Resolved]
  - Ileus [Recovered/Resolved]
  - Dehydration [Recovered/Resolved]
  - Abdominal pain [Recovered/Resolved]
  - Gastrointestinal motility disorder [Recovered/Resolved]
